FAERS Safety Report 4570183-1 (Version None)
Quarter: 2005Q1

REPORT INFORMATION
  Report Type: 
  Country: None (occurrence: None)
  Receive Date: 20050202
  Receipt Date: 20040301
  Transmission Date: 20050727
  Serious: Yes (Death, Life-Threatening)
  Sender: FDA-Public Use
  Company Number: F01200400411

PATIENT
  Age: 74 Year
  Sex: Male

DRUGS (6)
  1. CLOPIDOGREL BISULFATE [Suspect]
     Dosage: LOADING DOSE OF 300 MG FOLLOWED BY 75 MG DAILY
     Route: 048
     Dates: start: 20040227, end: 20040228
  2. ACETYLSALICYLIC ACID [Concomitant]
  3. STREPTOKINASE [Concomitant]
  4. METOPROLOL [Concomitant]
  5. SOTALOL HCL [Concomitant]
  6. MORPHINE [Concomitant]

REACTIONS (1)
  - HAEMORRHAGIC STROKE [None]
